FAERS Safety Report 16852141 (Version 3)
Quarter: 2021Q1

REPORT INFORMATION
  Report Type: Spontaneous
  Country: US (occurrence: US)
  Receive Date: 20190925
  Receipt Date: 20210111
  Transmission Date: 20210419
  Serious: No
  Sender: FDA-Public Use
  Company Number: US-PFIZER INC-2019412444

PATIENT
  Age: 59 Year
  Sex: Female

DRUGS (1)
  1. LYRICA [Suspect]
     Active Substance: PREGABALIN
     Indication: PAIN
     Dosage: UNK

REACTIONS (6)
  - Malaise [Unknown]
  - Visual impairment [Unknown]
  - Dyspnoea [Unknown]
  - Finger deformity [Unknown]
  - Intentional product use issue [Unknown]
  - Insomnia [Unknown]
